FAERS Safety Report 23981555 (Version 1)
Quarter: 2024Q2

REPORT INFORMATION
  Report Type: Spontaneous
  Country: US (occurrence: None)
  Receive Date: 20240615
  Receipt Date: 20240615
  Transmission Date: 20240715
  Serious: Yes (Other)
  Sender: FDA-Public Use
  Company Number: None

PATIENT
  Age: 28 Year
  Sex: Female
  Weight: 125.1 kg

DRUGS (1)
  1. ADAPALENE AND BENZOYL PEROXIDE [Suspect]
     Active Substance: ADAPALENE\BENZOYL PEROXIDE
     Indication: Acne
     Dosage: FREQUENCY : AT BEDTIME?
     Route: 061
     Dates: start: 20240613

REACTIONS (3)
  - Ocular hyperaemia [None]
  - Eye swelling [None]
  - Eyelid irritation [None]

NARRATIVE: CASE EVENT DATE: 20240614
